FAERS Safety Report 8180135-0 (Version None)
Quarter: 2012Q1

REPORT INFORMATION
  Report Type: 
  Country: None (occurrence: None)
  Receive Date: 20120217
  Receipt Date: 20120123
  Transmission Date: 20120608
  Serious: Yes (Life-Threatening, Hospitalization)
  Sender: FDA-Public Use
  Company Number: GAM-010-12-DE

PATIENT
  Age: 70 Year
  Sex: Male

DRUGS (4)
  1. ALLOPURINOL [Concomitant]
  2. OCTAGAM [Suspect]
     Indication: SECONDARY IMMUNODEFICIENCY
     Dosage: 20 G - 1 X 1 /D INTRAVENOUS (NOT OTHERWISE SPECIFIED)
     Route: 042
     Dates: start: 20111215, end: 20111215
  3. PHENPROCOUMON [Concomitant]
  4. LISINOPRIL [Concomitant]

REACTIONS (2)
  - CORONARY ARTERY STENOSIS [None]
  - ACUTE MYOCARDIAL INFARCTION [None]
